FAERS Safety Report 9457771 (Version 2)
Quarter: 2013Q3

REPORT INFORMATION
  Report Type: Spontaneous
  Country: JP (occurrence: JP)
  Receive Date: 20130814
  Receipt Date: 20130815
  Transmission Date: 20140515
  Serious: No
  Sender: FDA-Public Use
  Company Number: JP-JNJFOC-20130802214

PATIENT
  Age: 75 Year
  Sex: Male

DRUGS (1)
  1. DURATEP MT [Suspect]
     Indication: CANCER PAIN
     Route: 062

REACTIONS (2)
  - Application site pruritus [Unknown]
  - Treatment noncompliance [Unknown]
